FAERS Safety Report 24961917 (Version 1)
Quarter: 2025Q1

REPORT INFORMATION
  Report Type: Spontaneous
  Country: CN (occurrence: CN)
  Receive Date: 20250212
  Receipt Date: 20250212
  Transmission Date: 20250409
  Serious: Yes (Other)
  Sender: PFIZER
  Company Number: CN-PFIZER INC-PV202500016295

PATIENT
  Age: 59 Year
  Sex: Female

DRUGS (3)
  1. MEROPENEM [Suspect]
     Active Substance: MEROPENEM
     Indication: Infection
     Dosage: 1 GRAM, TID
     Route: 041
     Dates: start: 20250204
  2. COLISTIN B [Suspect]
     Active Substance: COLISTIN B
     Indication: Hepatic cirrhosis
     Dosage: 700000 ENZYME UNIT, BID
     Route: 041
     Dates: start: 20250205
  3. CILASTATIN SODIUM\IMIPENEM [Suspect]
     Active Substance: CILASTATIN SODIUM\IMIPENEM
     Indication: Infection
     Dosage: 1 GRAM, BID
     Route: 041
     Dates: start: 20250131, end: 20250204

REACTIONS (2)
  - Seizure [Recovering/Resolving]
  - Altered state of consciousness [Recovering/Resolving]

NARRATIVE: CASE EVENT DATE: 20250206
